FAERS Safety Report 9228224 (Version 1)
Quarter: 2013Q2

REPORT INFORMATION
  Report Type: Spontaneous
  Country: FR (occurrence: FR)
  Receive Date: 20130412
  Receipt Date: 20130412
  Transmission Date: 20140414
  Serious: Yes (Hospitalization)
  Sender: FDA-Public Use
  Company Number: FR-ROCHE-1210142

PATIENT
  Age: 64 Year
  Sex: Female

DRUGS (24)
  1. AVASTIN [Suspect]
     Indication: PRODUCT USED FOR UNKNOWN INDICATION
     Route: 042
     Dates: start: 20121206, end: 20121213
  2. AVASTIN [Suspect]
     Route: 065
     Dates: start: 20121220
  3. AVASTIN [Suspect]
     Route: 065
     Dates: start: 20121227
  4. AVASTIN [Suspect]
     Route: 065
     Dates: start: 20130103
  5. AVASTIN [Suspect]
     Route: 065
     Dates: start: 20130110
  6. AVASTIN [Suspect]
     Route: 065
     Dates: start: 20130117
  7. TAXOL [Suspect]
     Indication: BREAST CANCER
     Route: 042
     Dates: start: 20121206, end: 20121213
  8. TAXOL [Suspect]
     Route: 065
     Dates: start: 20130131
  9. XELODA [Concomitant]
     Route: 065
     Dates: start: 20130131
  10. ZOPHREN [Concomitant]
     Route: 042
  11. AZANTAC [Concomitant]
     Route: 065
  12. DEXAMETHASONE [Concomitant]
     Route: 065
  13. ATARAX [Concomitant]
     Route: 065
  14. CETIRIZINE [Concomitant]
     Route: 065
  15. COOLMETEC [Concomitant]
     Route: 065
  16. DIFFU K [Concomitant]
     Route: 065
  17. LEVOTHYROX [Concomitant]
     Dosage: 100 MG+25 MG
     Route: 065
  18. MIRTAZAPINE [Concomitant]
     Route: 065
  19. QUESTRAN [Concomitant]
     Route: 065
  20. SERESTA [Concomitant]
     Route: 065
  21. CORTICOID-SOLUPRED [Concomitant]
     Route: 065
  22. NOVORAPID [Concomitant]
     Route: 065
  23. LANTUS [Concomitant]
     Route: 065
  24. LOVENOX [Concomitant]
     Route: 065

REACTIONS (1)
  - Rash maculo-papular [Recovering/Resolving]
